FAERS Safety Report 11179585 (Version 1)
Quarter: 2015Q2

REPORT INFORMATION
  Report Type: Report from Study
  Country: CA (occurrence: CA)
  Receive Date: 20150611
  Receipt Date: 20150611
  Transmission Date: 20150821
  Serious: Yes (Other)
  Sender: FDA-Public Use
  Company Number: CA-ROCHE-1591402

PATIENT
  Sex: Female
  Weight: 77.4 kg

DRUGS (4)
  1. RITUXAN [Suspect]
     Active Substance: RITUXIMAB
     Indication: IMMUNE THROMBOCYTOPENIC PURPURA
     Route: 042
     Dates: start: 20110405
  2. PREDNISONE. [Concomitant]
     Active Substance: PREDNISONE
  3. TRIAMTERENE. [Concomitant]
     Active Substance: TRIAMTERENE
  4. FOLIC ACID. [Concomitant]
     Active Substance: FOLIC ACID

REACTIONS (7)
  - Blood cholesterol increased [Unknown]
  - Hypertension [Unknown]
  - Arthritis [Unknown]
  - Diverticulitis [Unknown]
  - Weight decreased [Not Recovered/Not Resolved]
  - Rectal abscess [Recovered/Resolved]
  - Fluid retention [Unknown]

NARRATIVE: CASE EVENT DATE: 2014
